FAERS Safety Report 5556142-0 (Version None)
Quarter: 2007Q4

REPORT INFORMATION
  Report Type: 
  Country: None (occurrence: None)
  Receive Date: 20071213
  Receipt Date: 20071204
  Transmission Date: 20080405
  Serious: Yes (Hospitalization)
  Sender: FDA-Public Use
  Company Number: JP-MERCK-0712USA01269

PATIENT

DRUGS (3)
  1. FOSAMAX [Suspect]
     Route: 048
  2. DOXAZOSIN MESYLATE [Concomitant]
     Route: 048
  3. PREDONINE [Concomitant]
     Route: 065

REACTIONS (1)
  - BLOOD UREA INCREASED [None]
